FAERS Safety Report 11292148 (Version 2)
Quarter: 2015Q3

REPORT INFORMATION
  Report Type: Spontaneous
  Country: JP (occurrence: JP)
  Receive Date: 20150722
  Receipt Date: 20150724
  Transmission Date: 20151125
  Serious: Yes (Hospitalization, Other)
  Sender: FDA-Public Use
  Company Number: JP-JNJFOC-20150516913

PATIENT
  Age: 29 Year
  Sex: Female

DRUGS (16)
  1. ADALIMUMAB [Concomitant]
     Active Substance: ADALIMUMAB
     Route: 065
     Dates: start: 201106
  2. PENTASA [Concomitant]
     Active Substance: MESALAMINE
     Dosage: 9 DF
     Route: 048
     Dates: start: 2004
  3. BIOFERMIN R [Concomitant]
     Active Substance: BACILLUS SUBTILIS\LACTOBACILLUS ACIDOPHILUS\STREPTOCOCCUS FAECAIS
     Route: 048
  4. REMICADE [Suspect]
     Active Substance: INFLIXIMAB
     Indication: CROHN^S DISEASE
     Route: 042
  5. ADALIMUMAB [Concomitant]
     Active Substance: ADALIMUMAB
     Route: 065
  6. FERROMIA [Concomitant]
     Active Substance: FERROUS CITRATE
     Dosage: 1 DF
     Route: 048
  7. REMICADE [Suspect]
     Active Substance: INFLIXIMAB
     Indication: CROHN^S DISEASE
     Route: 042
     Dates: start: 20100316
  8. EXCELASE [Concomitant]
     Active Substance: PANCRELIPASE
     Dosage: 3 DF
     Route: 048
  9. REMICADE [Suspect]
     Active Substance: INFLIXIMAB
     Indication: CROHN^S DISEASE
     Dosage: 11TH DOSE STARTED AT 20 ML/HR
     Route: 042
     Dates: start: 20120216
  10. ADALIMUMAB [Concomitant]
     Active Substance: ADALIMUMAB
     Route: 065
  11. ELENTAL [Concomitant]
     Active Substance: MINERALS\VITAMINS
     Dosage: 1 DF
     Route: 048
     Dates: end: 20130312
  12. BERIZYM [Concomitant]
     Active Substance: CELLULASE\DIASTASE\LIPASE
     Route: 048
  13. REMICADE [Suspect]
     Active Substance: INFLIXIMAB
     Indication: CROHN^S DISEASE
     Route: 042
  14. REMICADE [Suspect]
     Active Substance: INFLIXIMAB
     Indication: CROHN^S DISEASE
     Route: 042
     Dates: start: 201003, end: 2011
  15. REMICADE [Suspect]
     Active Substance: INFLIXIMAB
     Indication: CROHN^S DISEASE
     Route: 042
     Dates: start: 20120228
  16. ADALIMUMAB [Concomitant]
     Active Substance: ADALIMUMAB
     Route: 065

REACTIONS (6)
  - Infusion related reaction [Unknown]
  - Drug effect decreased [Unknown]
  - Respiratory disorder [Unknown]
  - Chills [Recovering/Resolving]
  - Oxygen saturation decreased [Unknown]
  - Drug specific antibody present [Unknown]

NARRATIVE: CASE EVENT DATE: 20120216
